FAERS Safety Report 10243270 (Version 2)
Quarter: 2014Q2

REPORT INFORMATION
  Report Type: Report from Study
  Country: US (occurrence: None)
  Receive Date: 20140616
  Receipt Date: 20140618
  Transmission Date: 20141212
  Serious: Yes (Hospitalization)
  Sender: FDA-Public Use
  Company Number: 153240

PATIENT
  Age: 43 Year
  Sex: Female
  Weight: 64 kg

DRUGS (2)
  1. LEUCOVORIN CALCIUM [Suspect]
     Indication: HEPATOCELLULAR CARCINOMA
     Dosage: 200MG/M2, CYCLICAL IV
     Route: 042
     Dates: start: 20140522
  2. REFER TO CIOMS TW201405008687 (29MAY2014) FOR DETAILS. [Concomitant]

REACTIONS (3)
  - Pyrexia [None]
  - White blood cell count increased [None]
  - C-reactive protein increased [None]
